FAERS Safety Report 5289368-4 (Version None)
Quarter: 2007Q2

REPORT INFORMATION
  Report Type: 
  Country: None (occurrence: None)
  Receive Date: 20070404
  Receipt Date: 20070404
  Transmission Date: 20071010
  Serious: No
  Sender: FDA-Public Use
  Company Number: None

PATIENT
  Age: 67 Year
  Sex: Male
  Weight: 89 kg

DRUGS (8)
  1. MORPHINE [Suspect]
  2. NITROGLYCERIN OINT [Concomitant]
  3. PROTONIX [Concomitant]
  4. ATENOLOL [Concomitant]
  5. REGLAN [Concomitant]
  6. LORAZEPAM [Concomitant]
  7. ACETAMINOPHEN AND HYDROCODONE BITARTRATE [Concomitant]
  8. ONDANSETRON [Concomitant]

REACTIONS (2)
  - INJECTION SITE ERYTHEMA [None]
  - PAIN IN EXTREMITY [None]
